FAERS Safety Report 6296762-1 (Version None)
Quarter: 2009Q3

REPORT INFORMATION
  Report Type: 
  Country: None (occurrence: None)
  Receive Date: 20090804
  Receipt Date: 20090723
  Transmission Date: 20100115
  Serious: Yes (Other)
  Sender: FDA-Public Use
  Company Number: US-WYE-H10309609

PATIENT
  Sex: Female
  Weight: 98.52 kg

DRUGS (5)
  1. PRISTIQ [Suspect]
     Indication: MAJOR DEPRESSION
     Route: 048
     Dates: start: 20090609, end: 20090708
  2. OMEPRAZOLE [Concomitant]
     Indication: GASTROOESOPHAGEAL REFLUX DISEASE
     Route: 048
  3. TOPAMAX [Concomitant]
     Indication: MIGRAINE
     Route: 048
  4. MOTRIN [Concomitant]
     Indication: PAIN
     Dosage: ^800^ THREE TIMES DAILY
     Route: 048
  5. KLONOPIN [Concomitant]
     Indication: ANXIETY
     Dosage: 0.5 TO 1 MG EVERY SIX HOURS AS NEEDED
     Route: 048

REACTIONS (1)
  - URINARY RETENTION [None]
